FAERS Safety Report 19005850 (Version 2)
Quarter: 2021Q1

REPORT INFORMATION
  Report Type: Spontaneous
  Country: US (occurrence: US)
  Receive Date: 20210314
  Receipt Date: 20210326
  Transmission Date: 20210420
  Serious: No
  Sender: FDA-Public Use
  Company Number: US-ASTRAZENECA-2021A112354

PATIENT
  Sex: Female

DRUGS (1)
  1. BYDUREON [Suspect]
     Active Substance: EXENATIDE
     Indication: BLOOD INSULIN DECREASED
     Route: 058
     Dates: start: 2019

REACTIONS (3)
  - Device malfunction [Unknown]
  - Weight fluctuation [Not Recovered/Not Resolved]
  - Injection site haemorrhage [Recovered/Resolved]
